FAERS Safety Report 7980857-8 (Version None)
Quarter: 2011Q4

REPORT INFORMATION
  Report Type: 
  Country: None (occurrence: None)
  Receive Date: 20111214
  Receipt Date: 20111209
  Transmission Date: 20120403
  Serious: Yes (Hospitalization)
  Sender: FDA-Public Use
  Company Number: US-AMGEN-USASP2011065878

PATIENT
  Age: 51 Year
  Sex: Male

DRUGS (1)
  1. ENBREL [Suspect]
     Indication: ANKYLOSING SPONDYLITIS
     Dosage: 50 MG, QWK
     Dates: start: 20020101, end: 20111001

REACTIONS (8)
  - NECK PAIN [None]
  - CHILLS [None]
  - PYREXIA [None]
  - HEADACHE [None]
  - ARTHRALGIA [None]
  - RESPIRATORY TRACT CONGESTION [None]
  - MUSCULOSKELETAL PAIN [None]
  - HIP ARTHROPLASTY [None]
